FAERS Safety Report 23997753 (Version 2)
Quarter: 2024Q3

REPORT INFORMATION
  Report Type: Spontaneous
  Country: FR (occurrence: FR)
  Receive Date: 20240621
  Receipt Date: 20240703
  Transmission Date: 20241017
  Serious: Yes (Hospitalization, Other)
  Sender: AUROBINDO
  Company Number: FR-AFSSAPS-NY2024000650

PATIENT
  Age: 78 Year
  Sex: Male
  Weight: 77 kg

DRUGS (14)
  1. BENDAMUSTINE [Suspect]
     Active Substance: BENDAMUSTINE
     Indication: Non-Hodgkin^s lymphoma
     Dosage: 1 DOSAGE FORM, EVERY MONTH
     Route: 042
     Dates: start: 20240305, end: 20240410
  2. BENDAMUSTINE [Suspect]
     Active Substance: BENDAMUSTINE
     Dosage: 170 MILLIGRAM, 1 TOTAL
     Route: 042
     Dates: start: 20240410, end: 20240410
  3. BENDAMUSTINE [Suspect]
     Active Substance: BENDAMUSTINE
     Dosage: 175 MILLIGRAM, 1 TOTAL
     Route: 042
     Dates: start: 20240413, end: 20240413
  4. RITUXIMAB [Suspect]
     Active Substance: RITUXIMAB
     Indication: Non-Hodgkin^s lymphoma
     Dosage: 1 DOSAGE FORM, EVERY MONTH
     Route: 042
     Dates: start: 20240305, end: 20240410
  5. RITUXIMAB [Suspect]
     Active Substance: RITUXIMAB
     Dosage: 195 MILLIGRAM, 1 TOTAL
     Route: 042
     Dates: start: 20240307, end: 20240307
  6. RITUXIMAB [Suspect]
     Active Substance: RITUXIMAB
     Dosage: 540 MILLIGRAM, 1 TOTAL
     Route: 042
     Dates: start: 20240308, end: 20240308
  7. RITUXIMAB [Suspect]
     Active Substance: RITUXIMAB
     Dosage: 735 MILLIGRAM, 1 TOTAL
     Route: 042
     Dates: start: 20240309, end: 20240309
  8. CALCIUM ASCORBATE [Concomitant]
     Active Substance: CALCIUM ASCORBATE
     Indication: Mineral supplementation
     Dosage: 500 MILLIGRAM, ONCE A DAY
     Route: 048
  9. CHOLECALCIFEROL [Concomitant]
     Active Substance: CHOLECALCIFEROL
     Indication: Vitamin supplementation
     Dosage: 1 DOSAGE FORM, EVERY 3 MONTHS
     Route: 048
  10. ACETAMINOPHEN [Concomitant]
     Active Substance: ACETAMINOPHEN
     Indication: Pain
     Dosage: 1 GRAM
     Route: 048
  11. LERCANIDIPINE HYDROCHLORIDE [Concomitant]
     Active Substance: LERCANIDIPINE HYDROCHLORIDE
     Indication: Hypertension
     Dosage: 10 MILLIGRAM, ONCE A DAY
     Route: 048
  12. JANUVIA [Concomitant]
     Active Substance: SITAGLIPTIN PHOSPHATE
     Indication: Type 2 diabetes mellitus
     Dosage: 50 MILLIGRAM, ONCE A DAY
     Route: 048
  13. BACTRIM [Concomitant]
     Active Substance: SULFAMETHOXAZOLE\TRIMETHOPRIM
     Indication: Opportunistic infection prophylaxis
     Dosage: 1 DOSAGE FORM, EVERY OTHER DAY
     Route: 048
  14. VALACYCLOVIR HYDROCHLORIDE [Concomitant]
     Active Substance: VALACYCLOVIR HYDROCHLORIDE
     Indication: Antiviral prophylaxis
     Dosage: 500 MILLIGRAM, TWO TIMES A DAY
     Route: 048

REACTIONS (2)
  - Colitis [Recovering/Resolving]
  - Nausea [Recovered/Resolved]

NARRATIVE: CASE EVENT DATE: 20240410
